FAERS Safety Report 5222028-4 (Version None)
Quarter: 2007Q1

REPORT INFORMATION
  Report Type: 
  Country: None (occurrence: None)
  Receive Date: 20070129
  Receipt Date: 20060404
  Transmission Date: 20070707
  Serious: No
  Sender: FDA-Public Use
  Company Number: 2006PV010663

PATIENT
  Age: 52 Year
  Sex: Female
  Weight: 86.4 kg

DRUGS (3)
  1. WELLBUTRIN [Suspect]
     Indication: DRUG USE FOR UNKNOWN INDICATION
     Route: 048
     Dates: start: 20060101, end: 20060101
  2. BYETTA [Suspect]
     Dosage: 5MCG TWICE PER DAY
     Route: 058
     Dates: start: 20050901
  3. PROZAC [Suspect]
     Indication: DRUG USE FOR UNKNOWN INDICATION
     Route: 065
     Dates: start: 20060320

REACTIONS (4)
  - ABDOMINAL PAIN UPPER [None]
  - DIARRHOEA [None]
  - GASTROINTESTINAL PAIN [None]
  - STOMACH DISCOMFORT [None]
